FAERS Safety Report 9626985 (Version 2)
Quarter: 2013Q4

REPORT INFORMATION
  Report Type: Report from Study
  Country: JP (occurrence: JP)
  Receive Date: 20131016
  Receipt Date: 20131016
  Transmission Date: 20140711
  Serious: Yes (Death, Life-Threatening, Other)
  Sender: FDA-Public Use
  Company Number: JP-SA-THYM-1001633

PATIENT
  Age: 11 Year
  Sex: Male
  Weight: 35 kg

DRUGS (24)
  1. THYMOGLOBULINE [Suspect]
     Indication: BONE MARROW CONDITIONING REGIMEN
     Dosage: 87.5 MG, QD
     Route: 042
     Dates: start: 20090626, end: 20090629
  2. SOLUTIONS FOR PARENTERAL NUTRITION [Concomitant]
     Indication: NUTRITIONAL SUPPLEMENTATION
     Dosage: UNK
     Dates: start: 20090624, end: 20090712
  3. SOLUTIONS FOR PARENTERAL NUTRITION [Concomitant]
     Indication: FLUID REPLACEMENT
     Dosage: UNK
     Dates: start: 20090624, end: 20090712
  4. MULTIVITAMINS [Concomitant]
     Indication: NUTRITIONAL SUPPLEMENTATION
     Dosage: UNK
     Dates: start: 20090626, end: 20090712
  5. MANGANESE CHLORIDE [Concomitant]
     Indication: NUTRITIONAL SUPPLEMENTATION
     Dosage: UNK
     Dates: start: 20090626, end: 20090712
  6. HEPARIN [Concomitant]
     Indication: PROPHYLAXIS
     Dosage: UNK
     Dates: start: 20090626, end: 20090712
  7. RINGER ACETATE SOLUTION [Concomitant]
     Indication: FLUID REPLACEMENT
     Dosage: UNK
     Dates: start: 20090626, end: 20090629
  8. RAMOSETRON HYDROCHLORIDE [Concomitant]
     Indication: PROPHYLAXIS OF NAUSEA AND VOMITING
     Dosage: UNK
     Dates: start: 20090625, end: 20090629
  9. CYCLOPHOSPHAMIDE [Concomitant]
     Indication: PREMEDICATION
     Dosage: UNK
     Dates: start: 20090626, end: 20090629
  10. METHYLPREDNISOLONE SODIUM SUCCINATE [Concomitant]
     Indication: PREMEDICATION
     Dosage: UNK
     Dates: start: 20090626, end: 20090629
  11. MESNA [Concomitant]
     Indication: HAEMORRHAGE PROPHYLAXIS
     Dosage: UNK
     Dates: start: 20090626, end: 20090629
  12. IMMUNOGLOBULIN [Concomitant]
     Indication: ANTIVIRAL PROPHYLAXIS
     Dosage: UNK
     Dates: start: 20090625, end: 20090625
  13. SODIUM CHLORIDE [Concomitant]
     Indication: HYPONATRAEMIA
     Dosage: UNK
     Dates: start: 20090701, end: 20090702
  14. ASPARTATE POTASSIUM/MAGNESIUM ASPARTATE [Concomitant]
     Indication: HYPOKALAEMIA
     Dosage: UNK
     Dates: start: 20090701, end: 20090702
  15. HYDROCORTISONE SODIUM SUCCINATE [Concomitant]
     Indication: ANAPHYLAXIS PROPHYLAXIS
     Dosage: UNK
     Dates: start: 20090701, end: 20090701
  16. METHOTREXATE [Concomitant]
     Indication: PROPHYLAXIS AGAINST GRAFT VERSUS HOST DISEASE
     Dosage: UNK
     Dates: start: 20090702, end: 20090707
  17. TACROLIMUS [Concomitant]
     Indication: PROPHYLAXIS AGAINST GRAFT VERSUS HOST DISEASE
     Dosage: UNK
     Dates: start: 20090630, end: 20090710
  18. POTASSIUM CHLORIDE [Concomitant]
     Indication: HYPOKALAEMIA
     Dosage: UNK
     Dates: start: 20090629, end: 20090630
  19. FAMOTIDINE [Concomitant]
     Indication: PEPTIC ULCER
     Dosage: UNK
     Dates: start: 20090630, end: 20090706
  20. AMINOACETIC ACID/CYSTEINE/GLYCYRRHIZIC ACID, AMMONIUM SALT [Concomitant]
     Indication: LIVER DISORDER
     Dosage: UNK
     Dates: start: 20090705, end: 20090711
  21. CARBAZOCHROME SODIUM SULFONATE [Concomitant]
     Indication: GASTRIC HAEMORRHAGE
     Dosage: UNK
     Dates: start: 20090708, end: 20090711
  22. CARBAZOCHROME SODIUM SULFONATE [Concomitant]
     Indication: HAEMATURIA
     Dosage: UNK
     Dates: start: 20090708, end: 20090711
  23. ALBUMIN [Concomitant]
     Indication: HYPOPROTEINAEMIA
     Dosage: UNK
     Dates: start: 20090704, end: 20090705
  24. PENTAMIDINE ISETHIONATE [Concomitant]
     Indication: ANTIFUNGAL PROPHYLAXIS
     Dosage: UNK
     Dates: start: 20090709, end: 20090709

REACTIONS (33)
  - Acute respiratory distress syndrome [Fatal]
  - Thrombotic microangiopathy [Fatal]
  - Engraftment syndrome [Fatal]
  - Multi-organ failure [Fatal]
  - Toxicity to various agents [Fatal]
  - Cardiac arrest [Fatal]
  - Disseminated intravascular coagulation [Fatal]
  - Cardiac failure [Fatal]
  - Interstitial lung disease [Fatal]
  - Gastrointestinal haemorrhage [Fatal]
  - Circulatory collapse [Fatal]
  - Pulmonary oedema [Fatal]
  - Pyrexia [Recovered/Resolved]
  - Hypokalaemia [Not Recovered/Not Resolved]
  - Haematuria [Not Recovered/Not Resolved]
  - Abdominal pain [Not Recovered/Not Resolved]
  - Sepsis [Fatal]
  - Pain [Not Recovered/Not Resolved]
  - Neutrophil count decreased [Fatal]
  - Lymphocyte count decreased [Fatal]
  - Platelet count decreased [Fatal]
  - Pneumonia [Not Recovered/Not Resolved]
  - Diarrhoea [Not Recovered/Not Resolved]
  - Vomiting [Not Recovered/Not Resolved]
  - White blood cell count decreased [Fatal]
  - Hyponatraemia [Not Recovered/Not Resolved]
  - Hypoproteinaemia [Recovered/Resolved]
  - Oliguria [Recovered/Resolved]
  - Oedema [Recovered/Resolved]
  - Hepatotoxicity [Not Recovered/Not Resolved]
  - Peptic ulcer [Not Recovered/Not Resolved]
  - Headache [Not Recovered/Not Resolved]
  - Chills [Not Recovered/Not Resolved]
